FAERS Safety Report 23540025 (Version 1)
Quarter: 2024Q1

REPORT INFORMATION
  Report Type: Spontaneous
  Country: JP (occurrence: JP)
  Receive Date: 20240219
  Receipt Date: 20240219
  Transmission Date: 20240409
  Serious: Yes (Hospitalization, Other)
  Sender: FDA-Public Use
  Company Number: JP-BAYER-2024A024314

PATIENT

DRUGS (2)
  1. KERENDIA [Suspect]
     Active Substance: FINERENONE
     Indication: Chronic kidney disease
     Dosage: UNK
     Route: 048
  2. KERENDIA [Suspect]
     Active Substance: FINERENONE
     Indication: Type 2 diabetes mellitus

REACTIONS (2)
  - Hospitalisation [None]
  - Renal impairment [None]
